FAERS Safety Report 15272784 (Version 1)
Quarter: 2018Q3

REPORT INFORMATION
  Report Type: Spontaneous
  Country: GR (occurrence: GR)
  Receive Date: 20180813
  Receipt Date: 20180813
  Transmission Date: 20181010
  Serious: Yes (Other)
  Sender: FDA-Public Use
  Company Number: GR-LANNETT COMPANY, INC.-GR-2018LAN000931

PATIENT
  Age: 78 Year
  Sex: Female

DRUGS (4)
  1. ROPIVACAINE [Suspect]
     Active Substance: ROPIVACAINE
     Dosage: 100 ML, UNK (POSTOPERATIVE)
     Route: 008
  2. MORPHINE SULFATE. [Suspect]
     Active Substance: MORPHINE SULFATE
     Dosage: 8 ML/HOUR, (POSTOPERATIVE)
     Route: 008
  3. ROPIVACAINE [Suspect]
     Active Substance: ROPIVACAINE
     Indication: EPIDURAL ANAESTHESIA
     Dosage: 12 ML, UNK
     Route: 008
  4. MORPHINE SULFATE. [Suspect]
     Active Substance: MORPHINE SULFATE
     Indication: EPIDURAL ANAESTHESIA
     Dosage: 3 ML, UNK (PREOPERATIVE)
     Route: 008

REACTIONS (2)
  - Anterior spinal artery syndrome [Not Recovered/Not Resolved]
  - Paraplegia [Not Recovered/Not Resolved]
